FAERS Safety Report 7886503-6 (Version None)
Quarter: 2011Q4

REPORT INFORMATION
  Report Type: 
  Country: None (occurrence: None)
  Receive Date: 20111102
  Receipt Date: 20110707
  Transmission Date: 20120403
  Serious: No
  Sender: FDA-Public Use
  Company Number: US-AMGEN-USASP2011034615

PATIENT
  Sex: Male

DRUGS (1)
  1. ENBREL [Suspect]
     Indication: RHEUMATOID ARTHRITIS
     Dosage: 50 MG, QWK
     Dates: start: 20010201

REACTIONS (7)
  - HEADACHE [None]
  - EXOSTOSIS [None]
  - LUNG DISORDER [None]
  - MUSCULOSKELETAL DISCOMFORT [None]
  - DYSPNOEA [None]
  - HEAD DISCOMFORT [None]
  - CYST [None]
